FAERS Safety Report 19414286 (Version 2)
Quarter: 2021Q2

REPORT INFORMATION
  Report Type: Spontaneous
  Country: AT (occurrence: AT)
  Receive Date: 20210615
  Receipt Date: 20210617
  Transmission Date: 20210717
  Serious: Yes (Disabling)
  Sender: FDA-Public Use
  Company Number: AT-ESPERIONTHERAPEUTICS-2021AUT01159

PATIENT
  Age: 76 Year
  Sex: Male

DRUGS (1)
  1. NILEMDO [Suspect]
     Active Substance: BEMPEDOIC ACID
     Indication: PRODUCT USED FOR UNKNOWN INDICATION
     Dosage: UNK
     Route: 030
     Dates: start: 20210324

REACTIONS (7)
  - Arthralgia [Recovered/Resolved]
  - Product use issue [Recovered/Resolved]
  - Social avoidant behaviour [Recovered/Resolved]
  - Back pain [Recovered/Resolved]
  - Apathy [Recovered/Resolved]
  - Myalgia [Recovered/Resolved]
  - Gait disturbance [Recovered/Resolved]

NARRATIVE: CASE EVENT DATE: 20210324
